FAERS Safety Report 20871900 (Version 1)
Quarter: 2022Q2

REPORT INFORMATION
  Report Type: Report from Study
  Country: US (occurrence: US)
  Receive Date: 20220525
  Receipt Date: 20220525
  Transmission Date: 20220721
  Serious: No
  Sender: FDA-Public Use
  Company Number: US-NOVARTISTESTPH-NVSC2022US119715

PATIENT

DRUGS (1)
  1. ENTRESTO [Suspect]
     Active Substance: SACUBITRIL\VALSARTAN
     Indication: Cardiac failure
     Dosage: 50 MG (24/26 MG: SACUBITRIL 24.3 MG, VALSARTAN 25.7 MG) (ON MEDICATION APPROXIMATELY FOR 6 WEEKS)
     Route: 048
     Dates: start: 202204

REACTIONS (1)
  - Muscle spasms [Unknown]
